FAERS Safety Report 24919584 (Version 1)
Quarter: 2025Q1

REPORT INFORMATION
  Report Type: Report from Study
  Country: US (occurrence: US)
  Receive Date: 20250204
  Receipt Date: 20250204
  Transmission Date: 20250408
  Serious: No
  Sender: EXELIXIS
  Company Number: US-EXELIXIS-CABO-23071728

PATIENT
  Sex: Male

DRUGS (8)
  1. CABOMETYX [Suspect]
     Active Substance: CABOZANTINIB S-MALATE
     Indication: Renal cell carcinoma
     Dates: start: 202305
  2. CABOMETYX [Suspect]
     Active Substance: CABOZANTINIB S-MALATE
     Dosage: 20 MG, QD
     Dates: start: 20231124
  3. OPDIVO [Suspect]
     Active Substance: NIVOLUMAB
     Indication: Renal cell carcinoma
     Dosage: UNK, Q4WEEKS
     Dates: start: 202305
  4. LEVOTHYROXINE [Concomitant]
     Active Substance: LEVOTHYROXINE
  5. ELIQUIS [Concomitant]
     Active Substance: APIXABAN
  6. TYLENOL [Concomitant]
     Active Substance: ACETAMINOPHEN
  7. ALBUTEROL [Concomitant]
     Active Substance: ALBUTEROL
  8. AMLODIPINE [Concomitant]
     Active Substance: AMLODIPINE BESYLATE

REACTIONS (11)
  - Blood pressure increased [Recovering/Resolving]
  - Acne [Not Recovered/Not Resolved]
  - Fatigue [Not Recovered/Not Resolved]
  - Diarrhoea [Recovering/Resolving]
  - Dyspepsia [Recovering/Resolving]
  - Abdominal pain upper [Recovering/Resolving]
  - Decreased appetite [Recovering/Resolving]
  - Weight decreased [Unknown]
  - Nail discolouration [Recovering/Resolving]
  - Nail disorder [Recovering/Resolving]
  - Adverse reaction [Unknown]
